FAERS Safety Report 24013652 (Version 1)
Quarter: 2024Q2

REPORT INFORMATION
  Report Type: Spontaneous
  Country: ES (occurrence: None)
  Receive Date: 20240626
  Receipt Date: 20240626
  Transmission Date: 20240716
  Serious: Yes (Hospitalization)
  Sender: FDA-Public Use
  Company Number: 2024A140689

PATIENT
  Age: 74 Year
  Sex: Female
  Weight: 60 kg

DRUGS (2)
  1. SAPHNELO [Suspect]
     Active Substance: ANIFROLUMAB\ANIFROLUMAB-FNIA
     Indication: Systemic lupus erythematosus
     Dosage: 300 MG EVERY 4 WEEKS300.0MG ONCE/SINGLE ADMINISTRATION
     Route: 040
     Dates: start: 20240301, end: 20240301
  2. PREDNISONE [Concomitant]
     Active Substance: PREDNISONE
     Indication: Systemic lupus erythematosus
     Route: 048

REACTIONS (2)
  - Persecutory delusion [Recovered/Resolved]
  - Psychotic disorder [Recovered/Resolved]

NARRATIVE: CASE EVENT DATE: 20240319
